FAERS Safety Report 18312019 (Version 1)
Quarter: 2020Q3

REPORT INFORMATION
  Report Type: Spontaneous
  Country: CA (occurrence: CA)
  Receive Date: 20200925
  Receipt Date: 20200925
  Transmission Date: 20201103
  Serious: Yes (Life-Threatening, Other)
  Sender: FDA-Public Use
  Company Number: CA-TEVA-2020-CA-1830577

PATIENT
  Age: 19 Year
  Sex: Male
  Weight: 116 kg

DRUGS (14)
  1. CYCLOPHOSPHAMIDE. [Suspect]
     Active Substance: CYCLOPHOSPHAMIDE
     Indication: EWING^S SARCOMA
     Route: 042
  2. AMITRIPTYLINE [Concomitant]
     Active Substance: AMITRIPTYLINE
  3. PREGABALIN. [Concomitant]
     Active Substance: PREGABALIN
  4. CHOLECALCIFEROL [Concomitant]
     Active Substance: CHOLECALCIFEROL
  5. VANCOMYCIN [Concomitant]
     Active Substance: VANCOMYCIN
  6. OLANZAPINE. [Concomitant]
     Active Substance: OLANZAPINE
  7. SULFAMETHOXAZOLE AND TRIMETHOPRIM [Concomitant]
     Active Substance: SULFAMETHOXAZOLE\TRIMETHOPRIM
  8. TOPOTECAN [Suspect]
     Active Substance: TOPOTECAN HYDROCHLORIDE
     Indication: EWING^S SARCOMA
     Route: 042
  9. FILGRASTIM [Concomitant]
     Active Substance: FILGRASTIM
  10. ONDANSETRON [Concomitant]
     Active Substance: ONDANSETRON
  11. VINCRISTINE SULFATE. [Suspect]
     Active Substance: VINCRISTINE SULFATE
     Indication: EWING^S SARCOMA
     Route: 042
  12. LORAZEPAM. [Concomitant]
     Active Substance: LORAZEPAM
  13. DEXAMETHASONE. [Concomitant]
     Active Substance: DEXAMETHASONE
     Route: 065
  14. DIMENHYDRINATE. [Concomitant]
     Active Substance: DIMENHYDRINATE

REACTIONS (6)
  - Blood pressure decreased [Unknown]
  - Aplastic anaemia [Unknown]
  - Asthenia [Unknown]
  - Syncope [Unknown]
  - Hypotonia [Unknown]
  - Fatigue [Unknown]
